FAERS Safety Report 11587625 (Version 1)
Quarter: 2015Q4

REPORT INFORMATION
  Report Type: Spontaneous
  Country: US (occurrence: US)
  Receive Date: 20151001
  Receipt Date: 20151001
  Transmission Date: 20160304
  Serious: Yes (Hospitalization)
  Sender: FDA-Public Use
  Company Number: US-ASTRAZENECA-2015SE93967

PATIENT
  Age: 65 Year
  Sex: Female
  Weight: 55.8 kg

DRUGS (4)
  1. CRESTOR [Suspect]
     Active Substance: ROSUVASTATIN CALCIUM
     Indication: BLOOD CHOLESTEROL INCREASED
     Route: 048
     Dates: start: 2005, end: 2013
  2. TRAZODONE [Concomitant]
     Active Substance: TRAZODONE HYDROCHLORIDE
  3. SEROQUEL [Suspect]
     Active Substance: QUETIAPINE FUMARATE
     Indication: SLEEP DISORDER
     Route: 048
     Dates: start: 2009, end: 2013
  4. SEROQUEL [Suspect]
     Active Substance: QUETIAPINE FUMARATE
     Indication: AFFECTIVE DISORDER
     Route: 048
     Dates: start: 2009, end: 2013

REACTIONS (6)
  - Affective disorder [Unknown]
  - Intentional product misuse [Unknown]
  - Myocardial infarction [Unknown]
  - Insomnia [Unknown]
  - Osteoarthritis [Unknown]
  - Syncope [Unknown]

NARRATIVE: CASE EVENT DATE: 2009
